FAERS Safety Report 11561440 (Version 1)
Quarter: 2015Q3

REPORT INFORMATION
  Report Type: Spontaneous
  Country: US (occurrence: US)
  Receive Date: 20150916
  Receipt Date: 20150916
  Transmission Date: 20151125
  Serious: No
  Sender: FDA-Public Use
  Company Number: US-ELI_LILLY_AND_COMPANY-US200810007067

PATIENT
  Age: 63 Year
  Sex: Male

DRUGS (8)
  1. FORTEO [Suspect]
     Active Substance: TERIPARATIDE
     Indication: OSTEOPOROSIS
     Dosage: 20 UG, DAILY (1/D)
     Route: 058
     Dates: start: 20070901, end: 200810
  2. LUNESTA [Concomitant]
     Active Substance: ESZOPICLONE
  3. LOVASTATIN. [Concomitant]
     Active Substance: LOVASTATIN
  4. ULTRACET [Concomitant]
     Active Substance: ACETAMINOPHEN\TRAMADOL HYDROCHLORIDE
  5. ZESTRIL [Concomitant]
     Active Substance: LISINOPRIL
  6. CLONAZEPAM. [Concomitant]
     Active Substance: CLONAZEPAM
  7. ANDROGEL [Concomitant]
     Active Substance: TESTOSTERONE
  8. HYDROCHLOROTHIAZIDE. [Concomitant]
     Active Substance: HYDROCHLOROTHIAZIDE

REACTIONS (2)
  - Blood calcium increased [Unknown]
  - Blood parathyroid hormone decreased [Unknown]

NARRATIVE: CASE EVENT DATE: 20080926
